FAERS Safety Report 13208818 (Version 1)
Quarter: 2017Q1

REPORT INFORMATION
  Report Type: Spontaneous
  Country: US (occurrence: US)
  Receive Date: 20170209
  Receipt Date: 20170209
  Transmission Date: 20170428
  Serious: No
  Sender: FDA-Public Use
  Company Number: US-ROCHE-1823030

PATIENT
  Sex: Male
  Weight: 27.24 kg

DRUGS (2)
  1. PEDIASURE [Concomitant]
     Active Substance: VITAMINS
  2. NUTROPIN AQ [Suspect]
     Active Substance: SOMATROPIN
     Indication: GROWTH HORMONE DEFICIENCY
     Route: 058

REACTIONS (4)
  - Urine odour abnormal [Recovered/Resolved]
  - Increased appetite [Unknown]
  - Fatigue [Unknown]
  - Thyroid disorder [Unknown]
